FAERS Safety Report 7240662-7 (Version None)
Quarter: 2011Q1

REPORT INFORMATION
  Report Type: 
  Country: None (occurrence: None)
  Receive Date: 20110124
  Receipt Date: 20100428
  Transmission Date: 20110831
  Serious: No
  Sender: FDA-Public Use
  Company Number: US-KINGPHARMUSA00001-K201000526

PATIENT
  Sex: Female

DRUGS (3)
  1. ZYRTEC [Concomitant]
  2. EPIPEN [Suspect]
     Dosage: UNK, SINGLE
     Dates: start: 20090421, end: 20090421
  3. NASONEX [Concomitant]

REACTIONS (5)
  - NERVE INJURY [None]
  - INJECTION SITE RASH [None]
  - ACCIDENTAL EXPOSURE [None]
  - EXPIRED DRUG ADMINISTERED [None]
  - INJECTION SITE PAIN [None]
